FAERS Safety Report 20905985 (Version 2)
Quarter: 2022Q4

REPORT INFORMATION
  Report Type: Spontaneous
  Country: RU (occurrence: None)
  Receive Date: 20220602
  Receipt Date: 20221102
  Transmission Date: 20230113
  Serious: Yes (Other)
  Sender: FDA-Public Use
  Company Number: RU-ROCHE-3103835

PATIENT
  Age: 54 Year
  Sex: Male
  Weight: 71 kg

DRUGS (32)
  1. ATEZOLIZUMAB [Suspect]
     Active Substance: ATEZOLIZUMAB
     Indication: Non-small cell lung cancer
     Route: 041
     Dates: start: 20200413
  2. ATEZOLIZUMAB [Suspect]
     Active Substance: ATEZOLIZUMAB
     Dosage: 4 CYCLES OF ATEZOLIZUMAB WAS ADMINISTERED
     Route: 065
     Dates: start: 20200120, end: 20200324
  3. ATEZOLIZUMAB [Suspect]
     Active Substance: ATEZOLIZUMAB
     Dosage: ON 09/SEP/2020, 30/SEP/2020 AND 21/OCT/2020, CYCLES 11, 12, 13 AND 14 OF ATEZOLIZUMAB WAS ADMINISTER
     Route: 041
     Dates: start: 20200819
  4. ATEZOLIZUMAB [Suspect]
     Active Substance: ATEZOLIZUMAB
     Dosage: 60 MINUTE INFUSION (1ST ADMINISTRATION ON DAY 1).
     Route: 041
     Dates: start: 20201111
  5. ATEZOLIZUMAB [Suspect]
     Active Substance: ATEZOLIZUMAB
     Dosage: ON 17/DEC/2020, CYCLES 16, 17 DOSE OF ATEZOLIZUMAB WAS ADMINISTERED.
     Route: 041
     Dates: start: 20201202
  6. ATEZOLIZUMAB [Suspect]
     Active Substance: ATEZOLIZUMAB
     Dosage: CYCLE 19.
     Route: 041
     Dates: start: 20210208
  7. ATEZOLIZUMAB [Suspect]
     Active Substance: ATEZOLIZUMAB
     Dosage: ON 22/MAR/2022, CYCLES 20, 21 DOSE OF ATEZOLIZUMAB WAS ADMINISTERED.
     Route: 041
     Dates: start: 20220301
  8. ATEZOLIZUMAB [Suspect]
     Active Substance: ATEZOLIZUMAB
     Dosage: ON 04/MAY/2022, 25/MAY/2022, 16/JUN/2022, 06/JUL/2022, 27/JUL/2022 AND 17/AUG/2022, CYCLES 22 TO 28
     Route: 041
     Dates: start: 20210413
  9. ATEZOLIZUMAB [Suspect]
     Active Substance: ATEZOLIZUMAB
     Dosage: ON 20/OCT/2021, 02/DEC/2021, CYCLES 29 TO 31 DOSE OF ATEZOLIZUMAB WAS ADMINISTERED.
     Route: 041
     Dates: start: 20210908
  10. ATEZOLIZUMAB [Suspect]
     Active Substance: ATEZOLIZUMAB
     Dosage: ON 13/JAN/2022, 03/FEB/2022, CYCLES 32, 33 AND 34 WERE PERFORMED WITH ATEZOLIZUMAB.
     Route: 041
     Dates: start: 20211223
  11. ATEZOLIZUMAB [Suspect]
     Active Substance: ATEZOLIZUMAB
     Dosage: CYCLE 35
     Route: 041
     Dates: start: 20220317
  12. ATEZOLIZUMAB [Suspect]
     Active Substance: ATEZOLIZUMAB
     Dosage: ON 28/APR/2022, 19/MAY/2022, 09/JUN/2022, 30/JUN/2022, DOSE OF ATEZOLIZUMAB WAS ADMINISTERED.
     Route: 065
     Dates: start: 20220407
  13. ATEZOLIZUMAB [Suspect]
     Active Substance: ATEZOLIZUMAB
     Dosage: ON 11/AUG/2022, CYCLE 40 TO 41 DOSE OF ATEZOLIZUMAB WAS ADMINISTERED.
     Route: 041
     Dates: start: 20220721
  14. ATEZOLIZUMAB [Suspect]
     Active Substance: ATEZOLIZUMAB
     Dosage: CYCLE 42
     Route: 065
     Dates: start: 20220901
  15. ATEZOLIZUMAB [Suspect]
     Active Substance: ATEZOLIZUMAB
     Dosage: CYCLE 43
     Route: 041
     Dates: start: 20220922
  16. BEVACIZUMAB [Suspect]
     Active Substance: BEVACIZUMAB
     Indication: Non-small cell lung cancer
     Route: 041
     Dates: start: 20200413
  17. BEVACIZUMAB [Suspect]
     Active Substance: BEVACIZUMAB
     Route: 065
     Dates: start: 20200120, end: 20200324
  18. BEVACIZUMAB [Suspect]
     Active Substance: BEVACIZUMAB
     Dosage: 08/JUL/2022, 29/JUL/2022, CYCLES 8, 9 AND 10 OF TARGETED THERAPY DOSE (1050 MG) OF BEVACIZUMAB COMBI
     Route: 041
     Dates: start: 20200617
  19. BEVACIZUMAB [Suspect]
     Active Substance: BEVACIZUMAB
     Dosage: 09/SEP/2020, 30/SEP/2020, 21/OCT/2020, CYCLES 11, 12, 13 AND 14 OF BEVACIZUMAB WAS ADMINISTERED.
     Route: 065
     Dates: start: 20200819
  20. BEVACIZUMAB [Suspect]
     Active Substance: BEVACIZUMAB
     Dosage: DOSE OF 15 MG/KG (72 KG) WAS 1080 MG, IN COMBINATION WITH 400 ML OF NORMAL SALINE 0.9%, 1.5 HOUR INF
     Route: 041
     Dates: start: 20201111
  21. BEVACIZUMAB [Suspect]
     Active Substance: BEVACIZUMAB
     Dosage: 17/DEC/2020, CYCLES 16,17 OF BEVACIZUMAB 15 MG/KG (72 KG) WAS 1080 MG, IN COMBINATION WITH 400 ML OF
     Route: 041
     Dates: start: 20201202
  22. BEVACIZUMAB [Suspect]
     Active Substance: BEVACIZUMAB
     Dosage: CYCLE 19 OF BEVACIZUMAB 15 MG/KG (72 KG) WAS 1080 MG IN COMBINATION WITH 400 ML OF SALINE SODIUM CHL
     Route: 065
     Dates: start: 20210208
  23. BEVACIZUMAB [Suspect]
     Active Substance: BEVACIZUMAB
     Dosage: 22/MAR/2022, CYCLES 20, 21 OF BEVACIZUMAB 15 MG/KG (72 KG) WAS 1080 MG, IN COMBINATION WITH 400 ML O
     Route: 041
     Dates: start: 20220301
  24. BEVACIZUMAB [Suspect]
     Active Substance: BEVACIZUMAB
     Dosage: ON 04/MAY/2022, 25/MAY/2022, 16/JUN/2022, 06/JUL/2022, 27/JUL/2022 AND 17/AUG/2022, CYCLES 22 TO 28
     Route: 041
     Dates: start: 20210413
  25. BEVACIZUMAB [Suspect]
     Active Substance: BEVACIZUMAB
     Dosage: ON 20/OCT/2021, 02/DEC/2021, CYCLES 29 TO 31 OF BEVACIZUMAB 15 MG/KG WAS 525 MG WAS ADMINISTERED.
     Route: 041
     Dates: start: 20210908
  26. BEVACIZUMAB [Suspect]
     Active Substance: BEVACIZUMAB
     Dosage: ON 13/JAN/2022, 03/FEB/2022, CYCLES 32,33 AND 34 WERE PERFORMED WITH BEVACIZUMAB 15 MG/KG WAS 1080 M
     Route: 041
     Dates: start: 20211223
  27. BEVACIZUMAB [Suspect]
     Active Substance: BEVACIZUMAB
     Dosage: DOSE OF 15 MG/KG WAS 1095 MG OF BEVACIZUMAB WAS ADMINISTERED.
     Route: 041
     Dates: start: 20220317
  28. BEVACIZUMAB [Suspect]
     Active Substance: BEVACIZUMAB
     Dosage: ON 28/APR/2022, 19/MAY/2022, 09/JUN/2022, 30/JUN/2022 DOSE 15 MG/KG WAS 1095 MG OF BEVACIZUMAB WAS A
     Route: 065
     Dates: start: 20220407
  29. BEVACIZUMAB [Suspect]
     Active Substance: BEVACIZUMAB
     Dosage: ON 11/AUG/2022, CYCLES 40 TO 41 OF BEVACIZUMAB 15MG/KG WAS 1080 MG WAS ADMINISTERED.
     Route: 041
     Dates: start: 20220721
  30. BEVACIZUMAB [Suspect]
     Active Substance: BEVACIZUMAB
     Dosage: CYCLE 42, DOSE 15 MG/KG WAS 1065 MG OF BEVACIZUMAB WAS ADMINISTERED ON DAY 1, 21 DAY CYCLE.
     Route: 065
     Dates: start: 20220901
  31. BEVACIZUMAB [Suspect]
     Active Substance: BEVACIZUMAB
     Dosage: CYCLE 43, DOSE 15 MG/KG WAS 1065 MG OF BEVACIZUMAB WAS ADMINISTERED.
     Route: 041
     Dates: start: 20220922
  32. LEVOTHYROXINE SODIUM [Concomitant]
     Active Substance: LEVOTHYROXINE SODIUM
     Dosage: 100 MG PER DAY

REACTIONS (18)
  - Mediastinal mass [Unknown]
  - Neoplasm malignant [Unknown]
  - Metastases to oesophagus [Unknown]
  - Metastases to spine [Unknown]
  - Thoracic vertebral fracture [Unknown]
  - Rib fracture [Unknown]
  - Pulmonary fibrosis [Unknown]
  - Spinal osteoarthritis [Unknown]
  - Neoplasm malignant [Unknown]
  - Metastases to adrenals [Unknown]
  - Renal disorder [Unknown]
  - Adrenal adenoma [Unknown]
  - Liver disorder [Unknown]
  - Pancreatic disorder [Unknown]
  - Gallbladder disorder [Unknown]
  - COVID-19 [Unknown]
  - Hypothyroidism [Unknown]
  - Atrioventricular block [Unknown]

NARRATIVE: CASE EVENT DATE: 20200725
